FAERS Safety Report 10102023 (Version 1)
Quarter: 2014Q2

REPORT INFORMATION
  Report Type: Spontaneous
  Country: US (occurrence: None)
  Receive Date: 20140423
  Receipt Date: 20140423
  Transmission Date: 20141212
  Serious: Yes (Other)
  Sender: FDA-Public Use
  Company Number: None

PATIENT
  Age: 17 Year
  Sex: Male
  Weight: 121.2 kg

DRUGS (2)
  1. DEPAKOTE ER [Suspect]
     Indication: UNEVALUABLE EVENT
     Dosage: 3 QD PO
     Route: 048
     Dates: start: 20040826
  2. DEPAKOTE ER [Suspect]
     Indication: MYOCLONIC EPILEPSY
     Dosage: 3 QD PO
     Route: 048
     Dates: start: 20040826

REACTIONS (2)
  - Hallucination [None]
  - Product substitution issue [None]
